FAERS Safety Report 6041219-6 (Version None)
Quarter: 2009Q1

REPORT INFORMATION
  Report Type: 
  Country: None (occurrence: None)
  Receive Date: 20090116
  Receipt Date: 20081029
  Transmission Date: 20090719
  Serious: No
  Sender: FDA-Public Use
  Company Number: US-BRISTOL-MYERS SQUIBB COMPANY-14339568

PATIENT
  Age: 53 Year
  Sex: Female

DRUGS (3)
  1. ABILIFY [Suspect]
     Indication: BIPOLAR DISORDER
     Route: 048
     Dates: start: 20080101, end: 20080501
  2. CYMBALTA [Concomitant]
  3. LAMICTAL [Concomitant]
     Dosage: 1 DOSAGE FORM = 150, UNITS NOT SPECIFIED.

REACTIONS (1)
  - ALOPECIA [None]
